FAERS Safety Report 8125157-0 (Version None)
Quarter: 2012Q1

REPORT INFORMATION
  Report Type: 
  Country: None (occurrence: None)
  Receive Date: 20120206
  Receipt Date: 20120123
  Transmission Date: 20120608
  Serious: Yes (Life-Threatening, Hospitalization)
  Sender: FDA-Public Use
  Company Number: 2012CP000018

PATIENT
  Age: 50 Year
  Sex: Female

DRUGS (5)
  1. ACARBOSE [Suspect]
     Indication: DIABETES MELLITUS
     Dosage: 50 MG;3/1 DAY;PO
     Route: 048
     Dates: start: 20050405, end: 20050901
  2. CARDIOCALM (NO PREF. NAME) [Suspect]
     Dosage: PO
     Route: 048
     Dates: start: 20050914, end: 20051012
  3. GINSENG (NO PREF. NAME) [Suspect]
     Indication: ASTHENIA
     Dosage: PO
     Route: 048
     Dates: start: 20050914, end: 20051012
  4. ACETAMINOPHEN [Suspect]
     Indication: HEADACHE
     Dosage: 1 GRAM;IV
     Route: 042
     Dates: start: 20051018, end: 20051019
  5. ATORVASTATIN CALCIUM [Suspect]
     Indication: HYPERLIPIDAEMIA
     Dosage: 10 MG;1 DAY;PO
     Route: 048
     Dates: start: 20050405, end: 20050901

REACTIONS (11)
  - LIVER TRANSPLANT [None]
  - CYTOLYTIC HEPATITIS [None]
  - RESTLESSNESS [None]
  - HEPATITIS FULMINANT [None]
  - HAEMATOLOGY TEST ABNORMAL [None]
  - HEPATOMEGALY [None]
  - HALLUCINATION [None]
  - TOXICITY TO VARIOUS AGENTS [None]
  - RENAL IMPAIRMENT [None]
  - LIVER TRANSPLANT REJECTION [None]
  - DRUG INTERACTION [None]
